FAERS Safety Report 10503666 (Version 1)
Quarter: 2014Q4

REPORT INFORMATION
  Report Type: Spontaneous
  Country: GB (occurrence: GB)
  Receive Date: 20141008
  Receipt Date: 20141008
  Transmission Date: 20150528
  Serious: Yes (Other)
  Sender: FDA-Public Use
  Company Number: GB-MICRO LABS LIMITED-BB2014-00802

PATIENT
  Age: 68 Year
  Sex: Female
  Weight: 66.22 kg

DRUGS (2)
  1. METFORMIN [Concomitant]
     Active Substance: METFORMIN HYDROCHLORIDE
     Indication: PRODUCT USED FOR UNKNOWN INDICATION
     Route: 065
  2. SIMVASTATIN. [Suspect]
     Active Substance: SIMVASTATIN
     Indication: BLOOD CHOLESTEROL INCREASED
     Route: 048
     Dates: end: 20140114

REACTIONS (6)
  - Poor quality sleep [Unknown]
  - Heart rate increased [Unknown]
  - Myalgia [Recovering/Resolving]
  - Fatigue [Unknown]
  - Listless [Unknown]
  - Amnesia [Unknown]

NARRATIVE: CASE EVENT DATE: 20140128
